FAERS Safety Report 11870316 (Version 1)
Quarter: 2015Q4

REPORT INFORMATION
  Report Type: Spontaneous
  Country: US (occurrence: None)
  Receive Date: 20151224
  Receipt Date: 20151224
  Transmission Date: 20160305
  Serious: Yes (Hospitalization)
  Sender: FDA-Public Use
  Company Number: None

PATIENT
  Age: 27 Year
  Sex: Female

DRUGS (5)
  1. LORAZEPAM. [Concomitant]
     Active Substance: LORAZEPAM
  2. OXYCODONE [Concomitant]
     Active Substance: OXYCODONE
  3. HEPARIN [Concomitant]
     Active Substance: HEPARIN SODIUM
  4. VANCOMYCIN [Suspect]
     Active Substance: VANCOMYCIN
     Indication: INFECTION
     Dosage: EVERY 6 HOURS
     Route: 042
     Dates: start: 20150927
  5. FENTANYL TRANSDERMAL SYSTEM [Concomitant]
     Active Substance: FENTANYL

REACTIONS (3)
  - Blood creatinine abnormal [None]
  - Laboratory test interference [None]
  - Drug level increased [None]

NARRATIVE: CASE EVENT DATE: 20151013
